FAERS Safety Report 9464549 (Version 2)
Quarter: 2013Q3

REPORT INFORMATION
  Report Type: Spontaneous
  Country: US (occurrence: US)
  Receive Date: 20130819
  Receipt Date: 20130904
  Transmission Date: 20140515
  Serious: Yes (Other)
  Sender: FDA-Public Use
  Company Number: US-JNJFOC-20130806284

PATIENT
  Sex: Male

DRUGS (16)
  1. NUCYNTA ER [Suspect]
     Indication: TORTICOLLIS
     Dosage: 50MG IN THE MORNING AND 100MG IN THE EVENING
     Route: 048
     Dates: start: 201308
  2. NUCYNTA ER [Suspect]
     Indication: TORTICOLLIS
     Route: 048
  3. NUCYNTA ER [Suspect]
     Indication: TORTICOLLIS
     Route: 048
     Dates: start: 2013, end: 201308
  4. NUCYNTA ER [Suspect]
     Indication: TORTICOLLIS
     Route: 048
     Dates: start: 2013, end: 2013
  5. STEROID INJECTION NOS [Suspect]
     Indication: PAIN
     Route: 065
     Dates: start: 2013
  6. RAPAFLO [Concomitant]
     Indication: BLADDER DISORDER
     Route: 048
     Dates: start: 20130802
  7. NEXIUM [Concomitant]
     Indication: GASTROOESOPHAGEAL REFLUX DISEASE
     Route: 048
  8. LEVOTHYROXINE [Concomitant]
     Indication: THYROID DISORDER
     Route: 048
     Dates: start: 2010
  9. BAYER ASPIRIN [Concomitant]
     Route: 048
     Dates: start: 2010
  10. AMLODIPINE [Concomitant]
     Indication: BLOOD PRESSURE
     Route: 048
     Dates: start: 2012
  11. CLONIDINE [Concomitant]
     Indication: BLOOD PRESSURE
     Dosage: AS NEEDED
     Route: 048
     Dates: start: 2013
  12. METOPROLOL [Concomitant]
     Indication: CARDIAC DISORDER
     Route: 048
  13. METOPROLOL [Concomitant]
     Indication: BLOOD PRESSURE
     Route: 048
  14. FLOMAX [Concomitant]
     Route: 048
     Dates: start: 2010
  15. JALYN [Concomitant]
     Route: 048
     Dates: start: 2010
  16. RANITIDINE [Concomitant]
     Indication: GASTRIC DISORDER
     Route: 048
     Dates: start: 2013

REACTIONS (7)
  - Constipation [Not Recovered/Not Resolved]
  - Anxiety [Unknown]
  - Abdominal pain upper [Not Recovered/Not Resolved]
  - Paranoia [Recovered/Resolved]
  - Agitation [Recovered/Resolved]
  - Adverse event [Unknown]
  - Drug ineffective [Not Recovered/Not Resolved]
